FAERS Safety Report 5706939-9 (Version None)
Quarter: 2008Q2

REPORT INFORMATION
  Report Type: 
  Country: None (occurrence: None)
  Receive Date: 20080415
  Receipt Date: 20080415
  Transmission Date: 20081010
  Serious: No
  Sender: FDA-Public Use
  Company Number: None

PATIENT
  Age: 39 Year
  Sex: Female
  Weight: 72.5755 kg

DRUGS (2)
  1. SINGULAIR [Suspect]
     Indication: ASTHMA
     Dosage: 10MG 1DAY PO
     Route: 048
     Dates: start: 20040301, end: 20080401
  2. SINGULAIR [Suspect]
     Indication: HYPERSENSITIVITY
     Dosage: 10MG 1DAY PO
     Route: 048
     Dates: start: 20040301, end: 20080401

REACTIONS (6)
  - ABNORMAL BEHAVIOUR [None]
  - AGGRESSION [None]
  - ANGER [None]
  - DEPRESSION [None]
  - MOOD SWINGS [None]
  - PREMENSTRUAL SYNDROME [None]
